FAERS Safety Report 6443252-9 (Version None)
Quarter: 2009Q4

REPORT INFORMATION
  Report Type: 
  Country: None (occurrence: None)
  Receive Date: 20091117
  Receipt Date: 20091109
  Transmission Date: 20100525
  Serious: Yes (Hospitalization)
  Sender: FDA-Public Use
  Company Number: CA-JNJFOC-20091103230

PATIENT
  Sex: Male
  Weight: 60 kg

DRUGS (2)
  1. REMICADE [Suspect]
     Dosage: 2ND DOSE, LOADING DOSE
     Route: 042
     Dates: start: 20090901, end: 20091001
  2. REMICADE [Suspect]
     Indication: CROHN'S DISEASE
     Dosage: 1ST DOSE, LOADING DOSE
     Route: 042
     Dates: start: 20090901, end: 20091001

REACTIONS (2)
  - CHRONIC OBSTRUCTIVE PULMONARY DISEASE [None]
  - PNEUMONIA [None]
